FAERS Safety Report 14834132 (Version 2)
Quarter: 2018Q2

REPORT INFORMATION
  Report Type: Spontaneous
  Country: US (occurrence: US)
  Receive Date: 20180501
  Receipt Date: 20180514
  Transmission Date: 20180711
  Serious: No
  Sender: FDA-Public Use
  Company Number: US-BIOMARINAP-US-2018-117907

PATIENT
  Age: 5 Year
  Sex: Male
  Weight: 27.9 kg

DRUGS (1)
  1. KUVAN [Suspect]
     Active Substance: SAPROPTERIN DIHYDROCHLORIDE
     Indication: PHENYLKETONURIA
     Dosage: 600 MG, QD
     Route: 048
     Dates: start: 20180310

REACTIONS (2)
  - Psychomotor hyperactivity [Recovering/Resolving]
  - Impulse-control disorder [Recovering/Resolving]

NARRATIVE: CASE EVENT DATE: 201803
